FAERS Safety Report 6739867-0 (Version None)
Quarter: 2010Q2

REPORT INFORMATION
  Report Type: 
  Country: None (occurrence: None)
  Receive Date: 20100525
  Receipt Date: 20100519
  Transmission Date: 20101027
  Serious: Yes (Death, Hospitalization, Other)
  Sender: FDA-Public Use
  Company Number: PHHY2010DE33173

PATIENT
  Sex: Female
  Weight: 57 kg

DRUGS (4)
  1. HYDROCHLOROTHIAZIDE [Suspect]
  2. ALISKIREN ALI+ [Suspect]
     Dosage: UNK
  3. VERAPAMIL [Concomitant]
     Dosage: UNK
  4. BETA BLOCKING AGENTS [Concomitant]

REACTIONS (3)
  - DEATH [None]
  - HAEMOGLOBIN DECREASED [None]
  - HYPERCHOLESTEROLAEMIA [None]
